FAERS Safety Report 5308051-X (Version None)
Quarter: 2007Q1

REPORT INFORMATION
  Report Type: 
  Country: None (occurrence: None)
  Receive Date: 20070130
  Receipt Date: 20061114
  Transmission Date: 20070707
  Serious: Yes (Other)
  Sender: FDA-Public Use
  Company Number: 471463

PATIENT
  Age: 60 Year
  Sex: Female
  Weight: 98.4 kg

DRUGS (8)
  1. RIBAVIRIN [Suspect]
     Indication: HEPATITIS C VIRUS
     Dosage: 1200 MG DAILY ORAL
     Route: 048
     Dates: start: 20060907
  2. PEGASYS [Suspect]
     Indication: HEPATITIS C VIRUS
     Dosage: 180 MCG 1 PER 1 WEEK SUBCUTANEOUS
     Route: 058
     Dates: start: 20060907
  3. ASPIRIN [Concomitant]
  4. CLOPIDOGREL [Concomitant]
  5. LASIX [Concomitant]
  6. PRAVASTATIN SODIUM [Concomitant]
  7. K-DUR 10 [Concomitant]
  8. DARVOCET (DEXTROPROPOXYPHENE/PARACETAMOL) [Concomitant]

REACTIONS (1)
  - HAEMOGLOBIN DECREASED [None]
